FAERS Safety Report 9678841 (Version 1)
Quarter: 2013Q4

REPORT INFORMATION
  Report Type: Report from Study
  Country: CA (occurrence: CA)
  Receive Date: 20131108
  Receipt Date: 20131108
  Transmission Date: 20140711
  Serious: Yes (Other)
  Sender: FDA-Public Use
  Company Number: CA-JNJFOC-20131016817

PATIENT
  Age: 29 Year
  Sex: Female
  Weight: 56.6 kg

DRUGS (3)
  1. REMICADE [Suspect]
     Indication: CROHN^S DISEASE
     Dosage: ONCE EVERY 2-6-8 WEEKS
     Route: 042
     Dates: start: 20131010
  2. REMICADE [Suspect]
     Indication: CROHN^S DISEASE
     Route: 042
  3. REMICADE [Suspect]
     Indication: CROHN^S DISEASE
     Route: 042
     Dates: start: 20131024, end: 20131030

REACTIONS (6)
  - Adverse event [Unknown]
  - Pharyngeal oedema [Not Recovered/Not Resolved]
  - Abdominal pain [Not Recovered/Not Resolved]
  - Throat irritation [Recovered/Resolved]
  - Exposure during pregnancy [Unknown]
  - Infusion related reaction [Not Recovered/Not Resolved]
